FAERS Safety Report 14687236 (Version 1)
Quarter: 2018Q1

REPORT INFORMATION
  Report Type: Spontaneous
  Country: DE (occurrence: DE)
  Receive Date: 20180328
  Receipt Date: 20180328
  Transmission Date: 20180509
  Serious: Yes (Death)
  Sender: FDA-Public Use
  Company Number: DE-AUROBINDO-AUR-APL-2018-013510

PATIENT
  Age: 41 Year
  Sex: Male

DRUGS (2)
  1. TRIMIPRAMINE [Interacting]
     Active Substance: TRIMIPRAMINE
     Indication: PRODUCT USED FOR UNKNOWN INDICATION
     Dosage: ()
     Route: 048
  2. OLANZAPINE. [Suspect]
     Active Substance: OLANZAPINE
     Indication: PRODUCT USED FOR UNKNOWN INDICATION
     Dosage: UNK
     Route: 065

REACTIONS (9)
  - Drug interaction [Fatal]
  - Internal haemorrhage [Fatal]
  - Hypoxia [Fatal]
  - Coma [Fatal]
  - Brain oedema [Fatal]
  - Aspiration [Fatal]
  - Pulmonary oedema [Fatal]
  - Cardiomyopathy [Fatal]
  - Cell death [Fatal]
